FAERS Safety Report 18357806 (Version 1)
Quarter: 2020Q4

REPORT INFORMATION
  Report Type: Report from Study
  Country: US (occurrence: US)
  Receive Date: 20201008
  Receipt Date: 20201008
  Transmission Date: 20210114
  Serious: No
  Sender: FDA-Public Use
  Company Number: NVSC2020US269840

PATIENT
  Sex: Male

DRUGS (1)
  1. VOTRIENT [Suspect]
     Active Substance: PAZOPANIB HYDROCHLORIDE
     Indication: PRODUCT USED FOR UNKNOWN INDICATION
     Route: 065

REACTIONS (6)
  - Diarrhoea [Unknown]
  - Abdominal discomfort [Unknown]
  - Constipation [Unknown]
  - Abdominal pain upper [Unknown]
  - Decreased appetite [Unknown]
  - Dysgeusia [Unknown]
